FAERS Safety Report 8706588 (Version 4)
Quarter: 2013Q1

REPORT INFORMATION
  Report Type: Spontaneous
  Country: US (occurrence: US)
  Receive Date: 20120803
  Receipt Date: 20130213
  Transmission Date: 20140127
  Serious: Yes (Hospitalization)
  Sender: FDA-Public Use
  Company Number: US-B.I. PHARMACEUTICALS,INC./RIDGEFIELD-2012-BP-16615BP

PATIENT
  Age: 85 Year
  Sex: Female
  Weight: 58.2 kg

DRUGS (7)
  1. PRADAXA [Suspect]
     Indication: ATRIAL FIBRILLATION
     Dosage: 300 MG
     Dates: start: 20120618, end: 20120705
  2. LEVOTHYROXINE [Concomitant]
     Indication: HYPOTHYROIDISM
     Dosage: 0.112 NR
     Dates: start: 200507
  3. PAROXETINE [Concomitant]
     Indication: ANXIETY
     Dosage: 10 MG
     Dates: start: 200507
  4. LOSARTAN/HCTZ [Concomitant]
     Indication: HYPERTENSION
     Dates: start: 200808
  5. METOPROLOL TARTRATE [Concomitant]
     Indication: HYPERTENSION
     Dosage: 100 MG
     Dates: start: 200808
  6. LORAZEPAM [Concomitant]
     Indication: ANXIETY
     Dosage: 0.5 MG
     Dates: start: 201105
  7. MESALAMINE [Concomitant]

REACTIONS (3)
  - Mouth haemorrhage [Recovered/Resolved]
  - Haematuria [Recovered/Resolved]
  - Genital haemorrhage [Recovered/Resolved]
